FAERS Safety Report 10541094 (Version 1)
Quarter: 2014Q4

REPORT INFORMATION
  Report Type: Spontaneous
  Country: US (occurrence: None)
  Receive Date: 20141023
  Receipt Date: 20141023
  Transmission Date: 20150529
  Serious: Yes (Hospitalization, Disabling)
  Sender: FDA-Public Use
  Company Number: None

PATIENT
  Age: 65 Year
  Sex: Female
  Weight: 66 kg

DRUGS (1)
  1. MIDAZOLAM [Suspect]
     Active Substance: MIDAZOLAM\MIDAZOLAM HYDROCHLORIDE
     Indication: AMNESIA
     Dosage: 1MG/100ML; 1MG INJ; 6/22: TWICE; 6/24:ONCE
     Route: 042
     Dates: start: 20140622, end: 20140625

REACTIONS (15)
  - Drug ineffective [None]
  - Dysarthria [None]
  - Nightmare [None]
  - Coordination abnormal [None]
  - Hypotension [None]
  - Flashback [None]
  - Respiratory failure [None]
  - Cardiac arrest [None]
  - Balance disorder [None]
  - Depression [None]
  - Memory impairment [None]
  - Movement disorder [None]
  - Amnesia [None]
  - Shock [None]
  - Post-traumatic stress disorder [None]

NARRATIVE: CASE EVENT DATE: 20140622
